FAERS Safety Report 11328746 (Version 2)
Quarter: 2015Q3

REPORT INFORMATION
  Report Type: Report from Study
  Country: US (occurrence: US)
  Receive Date: 20150731
  Receipt Date: 20150814
  Transmission Date: 20151125
  Serious: Yes (Other)
  Sender: FDA-Public Use
  Company Number: US-ABBVIE-15P-163-1434783-00

PATIENT
  Sex: Male

DRUGS (2)
  1. HUMIRA [Suspect]
     Active Substance: ADALIMUMAB
     Indication: COLITIS ULCERATIVE
     Route: 065
     Dates: start: 201410
  2. MAGNESIUM [Suspect]
     Active Substance: MAGNESIUM
     Indication: PRODUCT USED FOR UNKNOWN INDICATION
     Route: 065

REACTIONS (15)
  - Gastrointestinal haemorrhage [Unknown]
  - Arthralgia [Unknown]
  - Muscle spasms [Unknown]
  - Peripheral swelling [Recovered/Resolved]
  - Anaemia [Not Recovered/Not Resolved]
  - Painful defaecation [Unknown]
  - Drug dependence [Unknown]
  - Asthenia [Unknown]
  - Malaise [Unknown]
  - Abdominal pain upper [Unknown]
  - Pain [Unknown]
  - Depression [Not Recovered/Not Resolved]
  - Affect lability [Unknown]
  - Confusional state [Unknown]
  - Feeling abnormal [Unknown]
